FAERS Safety Report 4205236 (Version 4)
Quarter: 2013Q1

REPORT INFORMATION
  Report Type: Spontaneous
  Country: US (occurrence: US)
  Receive Date: 20040903
  Receipt Date: 20130118
  Transmission Date: 20140127
  Serious: Yes (Hospitalization, Other)
  Sender: FDA-Public Use
  Company Number: US-ASTRAZENECA-2004UW12577

PATIENT
  Age: 64 Year
  Sex: Female
  Weight: 61.2 kg

DRUGS (8)
  1. CRESTOR [Suspect]
     Indication: BLOOD CHOLESTEROL INCREASED
     Route: 048
  2. NEXIUM [Suspect]
     Route: 048
  3. TOPROL XL [Suspect]
     Route: 048
  4. EFFEXOR [Concomitant]
  5. PRILOSEC [Concomitant]
  6. TOPAMAX [Concomitant]
  7. XANAX [Concomitant]
  8. DOXEPIN [Concomitant]

REACTIONS (10)
  - Diaphragmatic hernia [Unknown]
  - Thrombosis [Unknown]
  - Road traffic accident [Unknown]
  - Accident [Unknown]
  - Trichorrhexis [Unknown]
  - Gastrooesophageal reflux disease [Unknown]
  - Pneumonia [Unknown]
  - Bronchitis [Unknown]
  - Cough [Unknown]
  - Alopecia [Unknown]
